FAERS Safety Report 7278964-0 (Version None)
Quarter: 2011Q1

REPORT INFORMATION
  Report Type: 
  Country: None (occurrence: None)
  Receive Date: 20110207
  Receipt Date: 20110124
  Transmission Date: 20110831
  Serious: Yes (Other)
  Sender: FDA-Public Use
  Company Number: CN-ROCHE-755253

PATIENT

DRUGS (6)
  1. TACROLIMUS [Suspect]
     Dosage: PROGRESSIVE REDUCTION IN DOSAGE
     Route: 065
  2. CYCLOSPORINE [Suspect]
     Route: 065
  3. PREDNISOLONE [Suspect]
     Dosage: DOSE TAPERED 5 TO 10 MG DAILY
     Route: 065
  4. MYCOPHENOLATE MOFETIL [Suspect]
     Route: 065
  5. PREDNISOLONE [Suspect]
     Route: 065
  6. MYCOPHENOLATE MOFETIL [Suspect]
     Route: 065

REACTIONS (3)
  - GRAFT DYSFUNCTION [None]
  - POLYOMAVIRUS-ASSOCIATED NEPHROPATHY [None]
  - BK VIRUS INFECTION [None]
